FAERS Safety Report 4853413-8 (Version None)
Quarter: 2005Q4

REPORT INFORMATION
  Report Type: 
  Country: None (occurrence: None)
  Receive Date: 20051214
  Receipt Date: 20051208
  Transmission Date: 20060501
  Serious: Yes (Hospitalization)
  Sender: FDA-Public Use
  Company Number: US-MERCK-0512USA01462

PATIENT
  Age: 58 Year
  Sex: Female

DRUGS (3)
  1. VIOXX [Suspect]
     Indication: ARTHRALGIA
     Route: 048
     Dates: start: 19990101
  2. ZOLOFT [Concomitant]
     Route: 065
  3. XANAX [Concomitant]
     Route: 065

REACTIONS (1)
  - ARTERIAL DISORDER [None]
